FAERS Safety Report 8547381-5 (Version None)
Quarter: 2012Q3

REPORT INFORMATION
  Report Type: 
  Country: None (occurrence: None)
  Receive Date: 20120727
  Receipt Date: 20120327
  Transmission Date: 20120928
  Serious: No
  Sender: FDA-Public Use
  Company Number: US-ASTRAZENECA-2012SE20389

PATIENT
  Sex: Female

DRUGS (4)
  1. TRAZODONE HCL [Concomitant]
  2. AMBIEN [Concomitant]
  3. LUNESTA [Concomitant]
  4. SEROQUEL [Suspect]
     Indication: SLEEP DISORDER
     Route: 048

REACTIONS (2)
  - DRUG DEPENDENCE [None]
  - OFF LABEL USE [None]
